FAERS Safety Report 5486439-4 (Version None)
Quarter: 2007Q4

REPORT INFORMATION
  Report Type: 
  Country: None (occurrence: None)
  Receive Date: 20071016
  Receipt Date: 20071008
  Transmission Date: 20080405
  Serious: Yes (Hospitalization)
  Sender: FDA-Public Use
  Company Number: A0667669A

PATIENT
  Age: 81 Year
  Sex: Male

DRUGS (11)
  1. AVANDIA [Suspect]
     Dosage: 2MG PER DAY
     Route: 048
     Dates: start: 20050101, end: 20060101
  2. ARTHRITIS MEDICATION [Concomitant]
  3. TOPROL-XL [Concomitant]
     Dosage: 100MG PER DAY
  4. LISINOPRIL [Concomitant]
     Dosage: 80MG PER DAY
  5. LANOXIN [Concomitant]
     Dosage: .25MG PER DAY
  6. NORVASC [Concomitant]
     Dosage: 10MG PER DAY
  7. ALLOPURINOL [Concomitant]
     Dosage: 300MG PER DAY
  8. METFORMIN HCL [Concomitant]
     Dosage: 1G TWICE PER DAY
  9. HYDROCHLOROTHIAZIDE [Concomitant]
     Dosage: 50MG PER DAY
  10. SULFASALAZINE [Concomitant]
     Dosage: 500MG FOUR TIMES PER DAY
  11. LANTUS [Concomitant]
     Dosage: 15UNIT AT NIGHT

REACTIONS (42)
  - ACUTE PRERENAL FAILURE [None]
  - ANAEMIA [None]
  - ASTHENIA [None]
  - ATRIAL FIBRILLATION [None]
  - BACTERIA URINE IDENTIFIED [None]
  - BLOOD AMYLASE INCREASED [None]
  - BLOOD CREATININE INCREASED [None]
  - BLOOD POTASSIUM INCREASED [None]
  - BLOOD UREA INCREASED [None]
  - BUNDLE BRANCH BLOCK LEFT [None]
  - CARDIAC DISORDER [None]
  - CEREBRAL ATROPHY [None]
  - CEREBRAL ISCHAEMIA [None]
  - CHOLELITHIASIS [None]
  - COLITIS [None]
  - COLONOSCOPY ABNORMAL [None]
  - CROHN'S DISEASE [None]
  - DEHYDRATION [None]
  - DIARRHOEA [None]
  - ERYTHEMA [None]
  - GASTRIC DISORDER [None]
  - GASTRITIS [None]
  - GASTROINTESTINAL ANGIODYSPLASIA [None]
  - GASTROINTESTINAL MOTILITY DISORDER [None]
  - HAEMATOCHEZIA [None]
  - HAEMORRHOIDS [None]
  - HEPATIC STEATOSIS [None]
  - HYPOTENSION [None]
  - HYPOVOLAEMIA [None]
  - LARGE INTESTINAL ULCER [None]
  - LEFT ATRIAL DILATATION [None]
  - LEFT VENTRICULAR HYPERTROPHY [None]
  - LIPASE INCREASED [None]
  - MEMORY IMPAIRMENT [None]
  - METABOLIC ACIDOSIS [None]
  - MYOCARDIAL INFARCTION [None]
  - NAUSEA [None]
  - OCCULT BLOOD POSITIVE [None]
  - PNEUMONIA [None]
  - POST PROCEDURAL HAEMORRHAGE [None]
  - RESPIRATORY FAILURE [None]
  - SEPSIS [None]
